FAERS Safety Report 13065548 (Version 1)
Quarter: 2016Q4

REPORT INFORMATION
  Report Type: Spontaneous
  Country: PE (occurrence: PE)
  Receive Date: 20161227
  Receipt Date: 20161227
  Transmission Date: 20170207
  Serious: Yes (Other)
  Sender: FDA-Public Use
  Company Number: PE-PFIZER INC-2016397591

PATIENT
  Age: 68 Year
  Sex: Female

DRUGS (3)
  1. JANUVIA [Suspect]
     Active Substance: SITAGLIPTIN PHOSPHATE
     Dosage: ONLY 1/2 TABLET
  2. ACCUPRIL [Suspect]
     Active Substance: QUINAPRIL HYDROCHLORIDE
     Indication: HYPERTENSION
     Dosage: 10 MG, 2X/DAY, 1 TABLET IN THE MORNING AND AT NIGHT
     Dates: start: 2001
  3. METFORMIN [Suspect]
     Active Substance: METFORMIN HYDROCHLORIDE
     Dosage: UNK

REACTIONS (8)
  - Feeling abnormal [Unknown]
  - Weight decreased [Unknown]
  - Skin exfoliation [Unknown]
  - Peripheral coldness [Recovered/Resolved]
  - Hypotension [Recovered/Resolved]
  - Dizziness [Unknown]
  - Gastric disorder [Unknown]
  - Diabetes mellitus [Unknown]
